FAERS Safety Report 4696354-1 (Version None)
Quarter: 2005Q2

REPORT INFORMATION
  Report Type: 
  Country: None (occurrence: None)
  Receive Date: 20050620
  Receipt Date: 20050610
  Transmission Date: 20051028
  Serious: Yes (Hospitalization, Other)
  Sender: FDA-Public Use
  Company Number: KII-2005-0017032

PATIENT
  Age: 55 Year
  Sex: Male

DRUGS (4)
  1. MORPHINE SULFATE [Suspect]
     Dosage: ORAL
     Route: 048
  2. ANTIPSYCHOTICS [Suspect]
     Dosage: ORAL
     Route: 048
  3. ABILIFY [Suspect]
     Dosage: ORAL
     Route: 048
  4. HYDROCODONE BITARTRATE + ACETAMINOPHEN [Suspect]
     Dosage: ORAL
     Route: 048

REACTIONS (5)
  - BLOOD CREATINE PHOSPHOKINASE INCREASED [None]
  - BLOOD CREATINE PHOSPHOKINASE MB INCREASED [None]
  - BLOOD GLUCOSE DECREASED [None]
  - COMA [None]
  - ELECTROCARDIOGRAM QT CORRECTED INTERVAL PROLONGED [None]
